FAERS Safety Report 19158909 (Version 3)
Quarter: 2022Q4

REPORT INFORMATION
  Report Type: Other
  Country: JP (occurrence: None)
  Receive Date: 20210420
  Receipt Date: 20221223
  Transmission Date: 20230113
  Serious: Yes (Hospitalization, Other)
  Sender: FDA-Public Use
  Company Number: JP-ROCHE-2808373

PATIENT
  Age: 59 Year
  Sex: Female
  Weight: 66 kg

DRUGS (28)
  1. RITUXIMAB [Suspect]
     Active Substance: RITUXIMAB
     Indication: Liver transplant
     Route: 041
     Dates: start: 20180627, end: 20180627
  2. TACROLIMUS [Suspect]
     Active Substance: TACROLIMUS
     Indication: Liver transplant
     Route: 048
     Dates: start: 20180803, end: 20180803
  3. TACROLIMUS [Suspect]
     Active Substance: TACROLIMUS
     Route: 048
     Dates: start: 20180817, end: 20180821
  4. TACROLIMUS [Suspect]
     Active Substance: TACROLIMUS
     Route: 048
     Dates: start: 20180830
  5. TACROLIMUS [Suspect]
     Active Substance: TACROLIMUS
     Route: 042
     Dates: start: 20180824, end: 20180831
  6. EVEROLIMUS [Suspect]
     Active Substance: EVEROLIMUS
     Indication: Liver transplant
     Route: 048
     Dates: start: 20181001, end: 20181005
  7. EVEROLIMUS [Suspect]
     Active Substance: EVEROLIMUS
     Route: 048
     Dates: start: 20181005, end: 20181117
  8. EVEROLIMUS [Suspect]
     Active Substance: EVEROLIMUS
     Route: 048
     Dates: start: 20181117, end: 20181212
  9. EVEROLIMUS [Suspect]
     Active Substance: EVEROLIMUS
     Route: 048
     Dates: start: 20181213, end: 20190424
  10. EVEROLIMUS [Suspect]
     Active Substance: EVEROLIMUS
     Route: 048
     Dates: start: 20190425
  11. METHYLPREDNISOLONE SODIUM SUCCINATE [Concomitant]
     Active Substance: METHYLPREDNISOLONE SODIUM SUCCINATE
     Indication: Liver transplant
     Route: 042
     Dates: start: 20180825, end: 20180831
  12. METHYLPREDNISOLONE SODIUM SUCCINATE [Concomitant]
     Active Substance: METHYLPREDNISOLONE SODIUM SUCCINATE
     Route: 042
     Dates: start: 20180901, end: 20180907
  13. PREDONINE [Concomitant]
     Active Substance: PREDNISOLONE
     Indication: Liver transplant
     Route: 048
     Dates: start: 20180908, end: 20180914
  14. PREDONINE [Concomitant]
     Active Substance: PREDNISOLONE
     Route: 048
     Dates: start: 20180915, end: 20180921
  15. PREDONINE [Concomitant]
     Active Substance: PREDNISOLONE
     Route: 048
     Dates: start: 20180922, end: 20181010
  16. MYCOPHENOLATE MOFETIL [Concomitant]
     Active Substance: MYCOPHENOLATE MOFETIL
     Indication: Liver transplant
     Route: 048
     Dates: start: 20180825, end: 20181014
  17. CLAFORAN [Concomitant]
     Active Substance: CEFOTAXIME SODIUM
     Indication: Infection prophylaxis
     Route: 042
     Dates: start: 20180824, end: 20180827
  18. AMPICILLIN [Concomitant]
     Active Substance: AMPICILLIN
     Indication: Infection prophylaxis
     Route: 042
     Dates: start: 20180824, end: 20180827
  19. MICAFUNGIN SODIUM [Concomitant]
     Active Substance: MICAFUNGIN SODIUM
     Indication: Infection prophylaxis
     Route: 042
     Dates: start: 20180824, end: 20180831
  20. FLUCONAZOLE [Concomitant]
     Active Substance: FLUCONAZOLE
     Indication: Infection prophylaxis
     Route: 048
     Dates: start: 20180901, end: 20180918
  21. FLUCONAZOLE [Concomitant]
     Active Substance: FLUCONAZOLE
     Route: 048
     Dates: start: 20180922, end: 20181108
  22. VALACYCLOVIR HYDROCHLORIDE [Concomitant]
     Active Substance: VALACYCLOVIR HYDROCHLORIDE
     Route: 048
     Dates: start: 20180901, end: 20180918
  23. VALACYCLOVIR HYDROCHLORIDE [Concomitant]
     Active Substance: VALACYCLOVIR HYDROCHLORIDE
     Route: 048
     Dates: start: 20180919, end: 20181020
  24. SULFAMETHOXAZOLE\TRIMETHOPRIM [Concomitant]
     Active Substance: SULFAMETHOXAZOLE\TRIMETHOPRIM
     Route: 048
     Dates: start: 20180901, end: 20180918
  25. GLECAPREVIR\PIBRENTASVIR [Concomitant]
     Active Substance: GLECAPREVIR\PIBRENTASVIR
     Indication: Hepatic cirrhosis
     Dosage: 3 DF
     Route: 048
     Dates: start: 20190612, end: 20190731
  26. AMLODIPINE [Concomitant]
     Active Substance: AMLODIPINE BESYLATE
     Indication: Hypertension
     Route: 048
     Dates: start: 20190208
  27. RABEPRAZOLE SODIUM [Concomitant]
     Active Substance: RABEPRAZOLE SODIUM
     Indication: Dyspepsia
     Route: 048
     Dates: start: 20190208
  28. DESYREL [Concomitant]
     Active Substance: TRAZODONE HYDROCHLORIDE
     Indication: Insomnia
     Route: 048
     Dates: start: 20190208

REACTIONS (5)
  - Incisional hernia [Recovered/Resolved]
  - Spontaneous bacterial peritonitis [Recovered/Resolved]
  - Renal impairment [Recovered/Resolved]
  - Stomatitis [Recovered/Resolved]
  - Oedema peripheral [Recovering/Resolving]

NARRATIVE: CASE EVENT DATE: 20180804
